FAERS Safety Report 8032747 (Version 4)
Quarter: 2016Q3

REPORT INFORMATION
  Report Type: Spontaneous
  Country: US (occurrence: US)
  Receive Date: 20110713
  Receipt Date: 20160930
  Transmission Date: 20161109
  Serious: Yes (Hospitalization, Other)
  Sender: FDA-Public Use
  Company Number: US-ELI_LILLY_AND_COMPANY-US201107002302

PATIENT
  Age: 84 Year
  Sex: Female

DRUGS (6)
  1. HUMALOG [Suspect]
     Active Substance: INSULIN LISPRO
     Dosage: SLIDING SCALE
     Route: 065
  2. LANTUS [Concomitant]
     Active Substance: INSULIN GLARGINE
     Dosage: 53 U, EACH MORNING
     Dates: start: 201011
  3. HUMULIN 70/30 [Suspect]
     Active Substance: INSULIN HUMAN
     Indication: TYPE 2 DIABETES MELLITUS
     Dosage: UNK UNK, UNKNOWN
     Route: 065
     Dates: start: 1998
  4. HUMALOG [Suspect]
     Active Substance: INSULIN LISPRO
     Indication: TYPE 2 DIABETES MELLITUS
     Dosage: SLIDING SCALE
     Route: 065
     Dates: start: 201009
  5. CRESTOR [Concomitant]
     Active Substance: ROSUVASTATIN CALCIUM
     Dosage: UNK
  6. HUMULIN 70/30 [Suspect]
     Active Substance: INSULIN HUMAN
     Dosage: SLIDING SCALE
     Dates: end: 201009

REACTIONS (13)
  - Visual impairment [Unknown]
  - Blood pressure increased [Unknown]
  - Heart rate irregular [Unknown]
  - Drug ineffective [Recovered/Resolved]
  - Eye haemorrhage [Recovered/Resolved]
  - Retinal detachment [Recovered/Resolved]
  - Blood glucose increased [Recovered/Resolved]
  - Blindness unilateral [Not Recovered/Not Resolved]
  - Eye excision [Recovered/Resolved]
  - Retinal tear [Unknown]
  - Eye prosthesis insertion [Recovered/Resolved]
  - Vision blurred [Unknown]
  - Injection site erythema [Unknown]

NARRATIVE: CASE EVENT DATE: 20100918
